FAERS Safety Report 7465277-7 (Version None)
Quarter: 2011Q2

REPORT INFORMATION
  Report Type: 
  Country: None (occurrence: None)
  Receive Date: 20110509
  Receipt Date: 20110503
  Transmission Date: 20111010
  Serious: Yes (Hospitalization)
  Sender: FDA-Public Use
  Company Number: PHFR2011GB02262

PATIENT
  Sex: Female

DRUGS (5)
  1. VALPROATE SODIUM [Concomitant]
     Indication: SCHIZOAFFECTIVE DISORDER
     Dosage: 600 MG, BID
     Route: 048
  2. QUETIAPINE [Concomitant]
     Indication: SCHIZOAFFECTIVE DISORDER
     Dosage: 350 MG, QD
     Route: 048
  3. LITHIUM CARBONATE [Concomitant]
     Indication: SCHIZOAFFECTIVE DISORDER
     Dosage: 800 MG, QD
     Route: 048
  4. ORPHENADRINE CITRATE [Concomitant]
     Dosage: 50 MG, BID
     Route: 048
  5. CLOZARIL [Suspect]
     Indication: SCHIZOAFFECTIVE DISORDER
     Dosage: 450 MG, UNK
     Route: 048
     Dates: start: 20020807

REACTIONS (2)
  - MUSCULAR WEAKNESS [None]
  - TRANSIENT ISCHAEMIC ATTACK [None]
